FAERS Safety Report 15153109 (Version 1)
Quarter: 2018Q3

REPORT INFORMATION
  Report Type: Spontaneous
  Country: US (occurrence: US)
  Receive Date: 20180717
  Receipt Date: 20180717
  Transmission Date: 20181010
  Serious: No
  Sender: FDA-Public Use
  Company Number: US-PFIZER INC-2018287627

PATIENT
  Sex: Female

DRUGS (1)
  1. GABAPENTIN. [Suspect]
     Active Substance: GABAPENTIN
     Indication: NEUROPATHY PERIPHERAL
     Dosage: 2400?3200 MG DAILY

REACTIONS (4)
  - Product use in unapproved indication [Unknown]
  - Vomiting [Recovered/Resolved]
  - Gastrooesophageal reflux disease [Recovered/Resolved]
  - Drug ineffective [Recovered/Resolved]
